FAERS Safety Report 14613526 (Version 1)
Quarter: 2018Q1

REPORT INFORMATION
  Report Type: Spontaneous
  Country: US (occurrence: US)
  Receive Date: 20180308
  Receipt Date: 20180308
  Transmission Date: 20180509
  Serious: No
  Sender: FDA-Public Use
  Company Number: US-MISSION PHARMACAL COMPANY-2043299

PATIENT
  Age: 27 Year
  Sex: Female

DRUGS (2)
  1. EFFER-K (UNSPECIFIED) [Concomitant]
     Route: 065
     Dates: start: 20180214
  2. THIOLA [Suspect]
     Active Substance: TIOPRONIN
     Indication: CALCULUS URINARY
     Route: 065
     Dates: start: 20150812

REACTIONS (4)
  - Malaise [Recovering/Resolving]
  - Decreased appetite [Recovering/Resolving]
  - Thirst decreased [Recovering/Resolving]
  - Drug ineffective [Unknown]
